FAERS Safety Report 6327714-0 (Version None)
Quarter: 2009Q3

REPORT INFORMATION
  Report Type: 
  Country: None (occurrence: None)
  Receive Date: 20090825
  Receipt Date: 20090821
  Transmission Date: 20100115
  Serious: Yes (Hospitalization)
  Sender: FDA-Public Use
  Company Number: JP-ABBOTT-09P-087-0558706-00

PATIENT
  Sex: Female
  Weight: 46 kg

DRUGS (10)
  1. HUMIRA [Suspect]
     Indication: RHEUMATOID ARTHRITIS
     Route: 058
     Dates: start: 20081222, end: 20090123
  2. HUMIRA [Suspect]
     Route: 058
     Dates: start: 20090224
  3. TACROLIMUS [Suspect]
     Indication: RHEUMATOID ARTHRITIS
     Route: 048
     Dates: start: 20090123
  4. SALAZOSULFAPYRIDINE [Concomitant]
     Indication: RHEUMATOID ARTHRITIS
     Route: 048
     Dates: start: 20080502
  5. BUCILLAMINE [Concomitant]
     Indication: RHEUMATOID ARTHRITIS
     Route: 048
     Dates: start: 20080227, end: 20080306
  6. DICLOFENAC SODIUM [Concomitant]
     Indication: RHEUMATOID ARTHRITIS
     Route: 048
  7. IRSOGLADINE MALEATE [Concomitant]
     Indication: GASTRITIS
     Route: 048
  8. THEOPHYLLINE [Concomitant]
     Indication: BRONCHITIS CHRONIC
     Route: 048
  9. AMBROXOL HYDROCHLORIDE [Concomitant]
     Indication: BRONCHITIS CHRONIC
     Route: 048
  10. RALOXIFENE HYDROCHLORIDE [Concomitant]
     Indication: OSTEOPOROSIS
     Route: 048

REACTIONS (2)
  - PNEUMONIA [None]
  - SUFFOCATION FEELING [None]
